FAERS Safety Report 6349803-7 (Version None)
Quarter: 2009Q3

REPORT INFORMATION
  Report Type: 
  Country: None (occurrence: None)
  Receive Date: 20090911
  Receipt Date: 20090907
  Transmission Date: 20100115
  Serious: Yes (Hospitalization)
  Sender: FDA-Public Use
  Company Number: AT-MERCK-0909AUT00001

PATIENT
  Age: 54 Year
  Sex: Male

DRUGS (14)
  1. ISENTRESS [Suspect]
     Indication: HIV INFECTION
     Route: 048
     Dates: start: 20090821, end: 20090824
  2. ESOMEPRAZOLE MAGNESIUM [Suspect]
     Route: 065
     Dates: start: 20061218, end: 20090820
  3. LAMIVUDINE [Concomitant]
     Indication: HIV INFECTION
     Route: 065
     Dates: start: 20060301
  4. ABACAVIR SULFATE [Concomitant]
     Indication: HIV INFECTION
     Route: 065
     Dates: start: 20060301
  5. LOPINAVIR AND RITONAVIR [Concomitant]
     Indication: HIV INFECTION
     Route: 065
     Dates: start: 20060301, end: 20090801
  6. ENTECAVIR [Concomitant]
     Indication: HIV INFECTION
     Route: 065
     Dates: start: 20090801
  7. ABACAVIR SULFATE AND LAMIVUDINE [Concomitant]
     Route: 065
     Dates: start: 20060327
  8. RISPERIDONE [Concomitant]
     Route: 065
     Dates: start: 20070710
  9. VALPROATE SODIUM [Suspect]
     Route: 065
     Dates: start: 20070226, end: 20090822
  10. VALPROATE SODIUM [Suspect]
     Route: 065
     Dates: start: 20090823
  11. DIHYDROCODEINE BITARTRATE [Concomitant]
     Route: 065
     Dates: start: 20000301
  12. LANSOPRAZOLE [Suspect]
     Route: 065
     Dates: start: 20090821
  13. IBANDRONATE SODIUM [Concomitant]
     Route: 065
     Dates: start: 20071020
  14. CALCIUM CARBONATE AND CHOLECALCIFEROL [Concomitant]
     Route: 048
     Dates: start: 20071012

REACTIONS (2)
  - DRUG INTERACTION [None]
  - STATUS EPILEPTICUS [None]
